FAERS Safety Report 8272707-X (Version None)
Quarter: 2012Q2

REPORT INFORMATION
  Report Type: 
  Country: None (occurrence: None)
  Receive Date: 20120411
  Receipt Date: 20120330
  Transmission Date: 20120825
  Serious: Yes (Death)
  Sender: FDA-Public Use
  Company Number: TW-BAXTER-2012BAX000272

PATIENT
  Sex: Male

DRUGS (1)
  1. BAXTER NUTRINEAL PD4 WITH 1.1% AMINO ACID [Suspect]
     Route: 033
     Dates: start: 20070301

REACTIONS (1)
  - ACUTE MYOCARDIAL INFARCTION [None]
